FAERS Safety Report 6050697-8 (Version None)
Quarter: 2009Q1

REPORT INFORMATION
  Report Type: 
  Country: None (occurrence: None)
  Receive Date: 20090121
  Receipt Date: 20090121
  Transmission Date: 20090719
  Serious: Yes (Life-Threatening, Hospitalization)
  Sender: FDA-Public Use
  Company Number: None

PATIENT
  Age: 4 Year
  Sex: Male
  Weight: 17.2367 kg

DRUGS (1)
  1. BOTOX [Suspect]
     Indication: MUSCLE SPASTICITY
     Dosage: 400 UNITS SINGLE USE
     Dates: start: 20080317, end: 20080317

REACTIONS (6)
  - ASTHENIA [None]
  - BOTULISM [None]
  - DYSPHAGIA [None]
  - DYSPNOEA [None]
  - FOOT DEFORMITY [None]
  - LETHARGY [None]
